FAERS Safety Report 5960970-7 (Version None)
Quarter: 2008Q4

REPORT INFORMATION
  Report Type: 
  Country: None (occurrence: None)
  Receive Date: 20081121
  Receipt Date: 20081119
  Transmission Date: 20090506
  Serious: Yes (Other)
  Sender: FDA-Public Use
  Company Number: FR-BRISTOL-MYERS SQUIBB COMPANY-14413264

PATIENT
  Sex: Male

DRUGS (2)
  1. SPRYCEL [Suspect]
  2. NON-CURRENT DRUGS [Interacting]

REACTIONS (3)
  - ANGIOEDEMA [None]
  - DRUG INTERACTION [None]
  - PLEURAL EFFUSION [None]
